FAERS Safety Report 14228155 (Version 3)
Quarter: 2018Q3

REPORT INFORMATION
  Report Type: Spontaneous
  Country: US (occurrence: US)
  Receive Date: 20171127
  Receipt Date: 20180710
  Transmission Date: 20181010
  Serious: Yes (Hospitalization)
  Sender: FDA-Public Use
  Company Number: US-OTSUKA-2017_014430

PATIENT
  Age: 22 Year
  Sex: Female

DRUGS (1)
  1. ABILIFY [Suspect]
     Active Substance: ARIPIPRAZOLE
     Indication: BIPOLAR DISORDER
     Dosage: 1 DF, QHS (1 DF=STARTING AT 5MG TO 35MG)
     Route: 048
     Dates: start: 2003, end: 2014

REACTIONS (21)
  - Obsessive-compulsive disorder [Recovering/Resolving]
  - Injury [Unknown]
  - Theft [Unknown]
  - Gambling disorder [Recovered/Resolved]
  - Shoplifting [Unknown]
  - Psychological trauma [Unknown]
  - Weight increased [Unknown]
  - Impulse-control disorder [Recovered/Resolved]
  - Behavioral addiction [Recovered/Resolved]
  - Impulsive behaviour [Recovered/Resolved]
  - Personality disorder [Recovered/Resolved]
  - Economic problem [Unknown]
  - Emotional distress [Unknown]
  - Psychosexual disorder [Recovered/Resolved]
  - Sexually inappropriate behaviour [Recovering/Resolving]
  - Compulsive shopping [Unknown]
  - Eating disorder [Unknown]
  - Hypersexuality [Unknown]
  - Loss of employment [Unknown]
  - Sexually transmitted disease [Recovered/Resolved]
  - Mental disorder [Unknown]

NARRATIVE: CASE EVENT DATE: 20070716
